FAERS Safety Report 14721535 (Version 1)
Quarter: 2018Q2

REPORT INFORMATION
  Report Type: Spontaneous
  Country: CN (occurrence: CN)
  Receive Date: 20180405
  Receipt Date: 20180405
  Transmission Date: 20180711
  Serious: Yes (Hospitalization)
  Sender: FDA-Public Use
  Company Number: CN-PURDUE-GBR-2018-0054551

PATIENT
  Age: 62 Year
  Sex: Male
  Weight: 90 kg

DRUGS (2)
  1. MS CONTIN [Suspect]
     Active Substance: MORPHINE SULFATE
     Indication: HEPATIC PAIN
     Dosage: 30 MG, Q12H
     Route: 048
     Dates: start: 20180202
  2. MS CONTIN [Suspect]
     Active Substance: MORPHINE SULFATE
     Indication: ABDOMINAL PAIN

REACTIONS (2)
  - Dysuria [Not Recovered/Not Resolved]
  - Urinary retention [Not Recovered/Not Resolved]

NARRATIVE: CASE EVENT DATE: 20180202
